FAERS Safety Report 11093991 (Version 1)
Quarter: 2015Q2

REPORT INFORMATION
  Report Type: Spontaneous
  Country: ID (occurrence: ID)
  Receive Date: 20150506
  Receipt Date: 20150506
  Transmission Date: 20150821
  Serious: Yes (Death)
  Sender: FDA-Public Use
  Company Number: ID-CELGENE-IDN-2015045923

PATIENT
  Age: 13 Year
  Sex: Female

DRUGS (3)
  1. LEUKOKINE [Concomitant]
     Indication: MYELODYSPLASTIC SYNDROME
     Route: 065
  2. REVLIMID [Suspect]
     Active Substance: LENALIDOMIDE
     Indication: OFF LABEL USE
  3. REVLIMID [Suspect]
     Active Substance: LENALIDOMIDE
     Indication: MYELODYSPLASTIC SYNDROME
     Route: 048

REACTIONS (4)
  - Cerebral haemorrhage [Fatal]
  - Infection [Fatal]
  - Sepsis [Fatal]
  - Disseminated intravascular coagulation [Fatal]
